FAERS Safety Report 9238217 (Version 1)
Quarter: 2013Q2

REPORT INFORMATION
  Report Type: Spontaneous
  Country: DK (occurrence: None)
  Receive Date: 20130416
  Receipt Date: 20130416
  Transmission Date: 20140414
  Serious: Yes (Death, Hospitalization)
  Sender: FDA-Public Use
  Company Number: TPA2013A02736

PATIENT
  Age: 79 Year
  Sex: Male

DRUGS (1)
  1. ADENURIC (FEBUXOSTAT) [Suspect]
     Indication: GOUT
     Route: 048
     Dates: start: 20100601

REACTIONS (4)
  - Pneumonia [None]
  - Dyspnoea [None]
  - Cardiac failure [None]
  - Condition aggravated [None]
